FAERS Safety Report 4480292-3 (Version None)
Quarter: 2004Q3

REPORT INFORMATION
  Report Type: 
  Country: None (occurrence: None)
  Receive Date: 20040923
  Receipt Date: 20040707
  Transmission Date: 20050211
  Serious: No
  Sender: FDA-Public Use
  Company Number: USA031255255

PATIENT
  Age: 80 Year
  Sex: Female
  Weight: 49 kg

DRUGS (8)
  1. FORTEO [Suspect]
     Indication: OSTEOPOROSIS
     Dosage: 20 UG DAY
     Dates: start: 20031201
  2. THYROID TAB [Concomitant]
  3. CALCIUM [Concomitant]
  4. PREVACID [Concomitant]
  5. CITRACAL + D [Concomitant]
  6. LIPITOR [Concomitant]
  7. INDERAL [Concomitant]
  8. VALIUM [Concomitant]

REACTIONS (14)
  - BLOOD PRESSURE INCREASED [None]
  - CHEST WALL PAIN [None]
  - COUGH [None]
  - DIARRHOEA [None]
  - DYSPEPSIA [None]
  - FATIGUE [None]
  - FEELING ABNORMAL [None]
  - INJECTION SITE HAEMORRHAGE [None]
  - MUSCLE CRAMP [None]
  - NASOPHARYNGITIS [None]
  - SKIN DISCOLOURATION [None]
  - STOMACH DISCOMFORT [None]
  - TREMOR [None]
  - WEIGHT DECREASED [None]
